FAERS Safety Report 9001237 (Version 1)
Quarter: 2013Q1

REPORT INFORMATION
  Report Type: Spontaneous
  Country: US (occurrence: None)
  Receive Date: 20130102
  Receipt Date: 20130102
  Transmission Date: 20140127
  Serious: Yes (Hospitalization)
  Sender: FDA-Public Use
  Company Number: None

PATIENT
  Age: 67 Year
  Sex: Male
  Weight: 68 kg

DRUGS (1)
  1. WARFARIN [Suspect]
     Indication: THROMBOSIS
     Dosage: 4 MG EVERY DAY PO
     Route: 048
     Dates: start: 20120704, end: 20120719

REACTIONS (3)
  - International normalised ratio increased [None]
  - Gastric haemorrhage [None]
  - Gingival bleeding [None]
